FAERS Safety Report 9056536 (Version 2)
Quarter: 2013Q2

REPORT INFORMATION
  Report Type: Report from Study
  Country: JP (occurrence: JP)
  Receive Date: 20130204
  Receipt Date: 20130410
  Transmission Date: 20140414
  Serious: Yes (Other)
  Sender: FDA-Public Use
  Company Number: JP-GLAXOSMITHKLINE-B0860792A

PATIENT
  Age: 48 Year
  Sex: Female
  Weight: 50 kg

DRUGS (6)
  1. TYKERB [Suspect]
     Indication: BREAST CANCER
     Route: 048
     Dates: start: 20110304, end: 20110328
  2. TYKERB [Suspect]
     Indication: BREAST CANCER
     Route: 048
     Dates: start: 20110405, end: 20110412
  3. TYKERB [Suspect]
     Indication: BREAST CANCER
     Route: 048
     Dates: start: 20110601, end: 20110601
  4. XELODA [Suspect]
     Route: 048
     Dates: start: 20110304, end: 20110328
  5. XELODA [Suspect]
     Route: 048
     Dates: start: 20110405, end: 20110407
  6. DOCETAXEL HYDRATE [Concomitant]
     Route: 042
     Dates: start: 20100109, end: 20110507

REACTIONS (8)
  - Cholangitis acute [Recovered/Resolved]
  - Dry skin [Recovered/Resolved]
  - Vomiting [Recovered/Resolved]
  - Diarrhoea [Recovered/Resolved]
  - Vomiting [Recovered/Resolved]
  - Diarrhoea [Recovered/Resolved]
  - Blood bilirubin increased [Recovered/Resolved]
  - Hepatic function abnormal [Recovered/Resolved]
